FAERS Safety Report 6738151-9 (Version None)
Quarter: 2010Q2

REPORT INFORMATION
  Report Type: 
  Country: None (occurrence: None)
  Receive Date: 20100524
  Receipt Date: 20100517
  Transmission Date: 20101027
  Serious: Yes (Other)
  Sender: FDA-Public Use
  Company Number: US-JNJFOC-20100506291

PATIENT
  Age: 4 Month
  Sex: Male
  Weight: 7.71 kg

DRUGS (4)
  1. CONCENTRATED MOTRIN INFANTS' [Suspect]
     Indication: INJECTION
     Dosage: EVERY 6 HOURS, AS NEEDED, FOR TWO DAYS
     Route: 065
  2. CONCENTRATED MOTRIN INFANTS' [Suspect]
     Indication: TEETHING
     Dosage: EVERY 6 HOURS, AS NEEDED, FOR TWO DAYS
     Route: 065
  3. CONCENTRATED TYLENOL INFANTS' CHERRY [Suspect]
     Indication: INJECTION
     Dosage: EVERY 6 HOURS- AS NEEDED
     Route: 048
  4. CONCENTRATED TYLENOL INFANTS' CHERRY [Suspect]
     Indication: TEETHING
     Dosage: EVERY 6 HOURS- AS NEEDED
     Route: 048

REACTIONS (2)
  - HYPERSOMNIA [None]
  - PRODUCT QUALITY ISSUE [None]
